FAERS Safety Report 12074662 (Version 1)
Quarter: 2016Q1

REPORT INFORMATION
  Report Type: Spontaneous
  Country: US (occurrence: US)
  Receive Date: 20160212
  Receipt Date: 20160212
  Transmission Date: 20160526
  Serious: No
  Sender: FDA-Public Use
  Company Number: US-PFIZER INC-2016057276

PATIENT
  Age: 32 Year
  Sex: Female

DRUGS (3)
  1. IBUPROFEN. [Suspect]
     Active Substance: IBUPROFEN
     Indication: PAIN
     Dosage: 200 MG THREE TWO-THREE TIMES A DAY AS NEEDED
     Dates: start: 201401
  2. NAPROXEN. [Suspect]
     Active Substance: NAPROXEN
     Dosage: UNK
  3. NAPROXEN. [Suspect]
     Active Substance: NAPROXEN
     Indication: PAIN
     Dosage: 500 MG, 2X/DAY
     Route: 048

REACTIONS (2)
  - Intentional product use issue [Unknown]
  - Drug ineffective [Unknown]

NARRATIVE: CASE EVENT DATE: 2014
